FAERS Safety Report 16567241 (Version 3)
Quarter: 2020Q1

REPORT INFORMATION
  Report Type: Spontaneous
  Country: US (occurrence: US)
  Receive Date: 20190712
  Receipt Date: 20200217
  Transmission Date: 20200409
  Serious: Yes (Hospitalization, Other)
  Sender: FDA-Public Use
  Company Number: US-PFIZER INC-2016035652

PATIENT
  Age: 62 Year
  Sex: Male
  Weight: 76.64 kg

DRUGS (4)
  1. RAPAMUNE [Suspect]
     Active Substance: SIROLIMUS
     Indication: LIVER TRANSPLANT
     Dosage: 1 MG, 1X/DAY
     Route: 048
     Dates: start: 2013
  2. RAPAMUNE [Suspect]
     Active Substance: SIROLIMUS
     Dosage: 2 MG, DAILY (1MG: TAKE 2 TABLETS (2MG))
     Route: 048
     Dates: start: 20160106
  3. RAPAMUNE [Suspect]
     Active Substance: SIROLIMUS
     Dosage: 1 MG, DAILY
     Route: 048
     Dates: start: 20190124
  4. RAPAMUNE [Suspect]
     Active Substance: SIROLIMUS
     Dosage: UNK
     Dates: start: 20190701

REACTIONS (5)
  - Clostridium difficile colitis [Recovering/Resolving]
  - Off label use [Unknown]
  - Hernia [Recovering/Resolving]
  - Product use in unapproved indication [Unknown]
  - Drug level decreased [Unknown]

NARRATIVE: CASE EVENT DATE: 2013
